FAERS Safety Report 6011963-5 (Version None)
Quarter: 2008Q4

REPORT INFORMATION
  Report Type: 
  Country: None (occurrence: None)
  Receive Date: 20081218
  Receipt Date: 20081015
  Transmission Date: 20090506
  Serious: No
  Sender: FDA-Public Use
  Company Number: US-ASTRAZENECA-2008UW22631

PATIENT
  Age: 53 Year
  Sex: Female
  Weight: 70.8 kg

DRUGS (9)
  1. CRESTOR [Suspect]
     Indication: BLOOD CHOLESTEROL INCREASED
     Route: 048
     Dates: start: 20081008, end: 20081013
  2. SINGULAIR [Concomitant]
  3. PLAVIX [Concomitant]
  4. NEXIUM [Concomitant]
     Route: 048
  5. FISH OIL [Concomitant]
  6. LASIX [Concomitant]
  7. METFORMIN HCL [Concomitant]
  8. AMARYL [Concomitant]
  9. GLUCOSAMINE [Concomitant]

REACTIONS (3)
  - BEDRIDDEN [None]
  - FEELING ABNORMAL [None]
  - VOMITING [None]
